FAERS Safety Report 8900541 (Version 4)
Quarter: 2014Q1

REPORT INFORMATION
  Report Type: Spontaneous
  Country: US (occurrence: US)
  Receive Date: 20121109
  Receipt Date: 20140224
  Transmission Date: 20141002
  Serious: Yes (Hospitalization, Other)
  Sender: FDA-Public Use
  Company Number: US-009507513-1211USA002971

PATIENT
  Age: 17 Year
  Sex: Female
  Weight: 89.34 kg

DRUGS (3)
  1. IMPLANON [Suspect]
     Indication: CONTRACEPTION
     Dosage: UNK
     Route: 059
     Dates: start: 20091102
  2. IMPLANON [Suspect]
     Indication: CONTRACEPTION
  3. IBUPROFEN [Concomitant]
     Dosage: 600 MG, PRN

REACTIONS (11)
  - Abortion spontaneous [Not Recovered/Not Resolved]
  - Device difficult to use [Unknown]
  - Menstrual disorder [Not Recovered/Not Resolved]
  - Oligomenorrhoea [Not Recovered/Not Resolved]
  - Menorrhagia [Not Recovered/Not Resolved]
  - Limb injury [Not Recovered/Not Resolved]
  - Medical device complication [Not Recovered/Not Resolved]
  - Incorrect drug administration duration [Unknown]
  - Unintended pregnancy [Recovered/Resolved]
  - Urinary tract infection [Not Recovered/Not Resolved]
  - Expired drug administered [Unknown]
